FAERS Safety Report 18185592 (Version 1)
Quarter: 2020Q3

REPORT INFORMATION
  Report Type: Spontaneous
  Country: US (occurrence: US)
  Receive Date: 20200821
  Receipt Date: 20200821
  Transmission Date: 20201103
  Serious: Yes (Life-Threatening, Hospitalization)
  Sender: FDA-Public Use
  Company Number: None

PATIENT
  Age: 48 Year
  Sex: Female

DRUGS (1)
  1. BOTOX [Suspect]
     Active Substance: ONABOTULINUMTOXINA
     Route: 058

REACTIONS (27)
  - Dyspnoea [None]
  - Abdominal pain upper [None]
  - Musculoskeletal stiffness [None]
  - Asthenia [None]
  - Dry eye [None]
  - Influenza like illness [None]
  - Lip dry [None]
  - Dehydration [None]
  - Pyrexia [None]
  - Rash [None]
  - Muscle spasms [None]
  - Migraine [None]
  - Adverse food reaction [None]
  - Palpitations [None]
  - Vitreous floaters [None]
  - Dysphagia [None]
  - Diplegia [None]
  - Pain in extremity [None]
  - Heart rate increased [None]
  - Photophobia [None]
  - Constipation [None]
  - Urinary tract infection [None]
  - Back pain [None]
  - Myalgia [None]
  - Skin wrinkling [None]
  - Dry skin [None]
  - Vision blurred [None]

NARRATIVE: CASE EVENT DATE: 20161221
